FAERS Safety Report 5850537-3 (Version None)
Quarter: 2008Q3

REPORT INFORMATION
  Report Type: 
  Country: None (occurrence: None)
  Receive Date: 20080819
  Receipt Date: 20080819
  Transmission Date: 20090109
  Serious: Yes (Life-Threatening)
  Sender: FDA-Public Use
  Company Number: None

PATIENT
  Age: 31 Year
  Sex: Male
  Weight: 102.0593 kg

DRUGS (1)
  1. ANTABUSE [Suspect]

REACTIONS (1)
  - MEDICATION ERROR [None]
